FAERS Safety Report 6444482-2 (Version None)
Quarter: 2009Q4

REPORT INFORMATION
  Report Type: 
  Country: None (occurrence: None)
  Receive Date: 20091117
  Receipt Date: 20091117
  Transmission Date: 20100525
  Serious: Yes (Hospitalization)
  Sender: FDA-Public Use
  Company Number: None

PATIENT
  Age: 34 Year
  Sex: Female
  Weight: 63.5036 kg

DRUGS (1)
  1. XANAX [Suspect]
     Indication: STRESS
     Dosage: .25 MG 3 DAY PO
     Route: 048
     Dates: start: 20001020, end: 20001022

REACTIONS (6)
  - AGGRESSION [None]
  - AMNESIA [None]
  - ANGER [None]
  - CONFUSIONAL STATE [None]
  - DISORIENTATION [None]
  - PARADOXICAL DRUG REACTION [None]
